FAERS Safety Report 4616090-7 (Version None)
Quarter: 2005Q1

REPORT INFORMATION
  Report Type: 
  Country: None (occurrence: None)
  Receive Date: 20050323
  Receipt Date: 20040526
  Transmission Date: 20050727
  Serious: Yes (Hospitalization)
  Sender: FDA-Public Use
  Company Number: DE-BRISTOL-MYERS SQUIBB COMPANY-12602124

PATIENT
  Age: 73 Year
  Sex: Female
  Weight: 54 kg

DRUGS (2)
  1. CARBOPLATIN [Suspect]
     Indication: ENDOMETRIAL CANCER
     Dosage: AUC=6; CYCLE 1: 20-JAN-2004 REDUCED TO AUC 5 ON 23MAR + 20APR
     Route: 042
     Dates: start: 20040420, end: 20040420
  2. CAELYX [Suspect]
     Indication: ENDOMETRIAL CANCER
     Dosage: CYCLE 1: 20-JAN-2004 @ 40 MG/M^2 REDUCED TO 30 MG/M^2 FROM 23MAR TO 20-APR-04
     Route: 042
     Dates: start: 20040420, end: 20040420

REACTIONS (4)
  - ANAEMIA [None]
  - BLOOD CREATININE INCREASED [None]
  - URINARY RETENTION [None]
  - VERTIGO [None]
